FAERS Safety Report 7569177-3 (Version None)
Quarter: 2011Q2

REPORT INFORMATION
  Report Type: 
  Country: None (occurrence: None)
  Receive Date: 20110623
  Receipt Date: 20110610
  Transmission Date: 20111010
  Serious: Yes (Hospitalization, Other)
  Sender: FDA-Public Use
  Company Number: PHHY2011BR51787

PATIENT
  Sex: Female
  Weight: 64 kg

DRUGS (10)
  1. LEVOID [Concomitant]
     Dosage: 1 DF, QD
  2. METOPROLOL SUCCINATE [Concomitant]
     Dosage: 1 DF, QD
  3. GALVUS [Concomitant]
     Dosage: 0.5 DF, QD
  4. BETOPTIC [Concomitant]
     Dosage: 1 DL, DAILY IN EACH EYE
  5. EXELON [Suspect]
     Indication: DEMENTIA ALZHEIMER'S TYPE
     Dosage: 4.6 MG/24 HOURS (9MG/5CM^2 PATCH DAILY)
     Route: 062
     Dates: start: 20100723
  6. PLAQUETAR [Concomitant]
     Dosage: 0.5 DF, UNK
  7. MACRODANTINA [Concomitant]
     Dosage: 1 DF, BID
  8. LASIX [Concomitant]
     Dosage: 0.5 DF, DAILY
  9. EXELON [Suspect]
     Dosage: 9.5 MG/ 24 HOURS (18MG/10CM^2, ONE PATCH DAILY)
     Route: 062
  10. NEUSINE [Concomitant]
     Dosage: 4%, 40MG/ML (3 DROPS ONCE A DAY)

REACTIONS (4)
  - PNEUMONIA [None]
  - DECUBITUS ULCER [None]
  - REPETITIVE SPEECH [None]
  - URINARY TRACT INFECTION [None]
